FAERS Safety Report 23544373 (Version 1)
Quarter: 2024Q1

REPORT INFORMATION
  Report Type: Spontaneous
  Country: DK (occurrence: DK)
  Receive Date: 20240220
  Receipt Date: 20240220
  Transmission Date: 20240409
  Serious: Yes (Life-Threatening, Hospitalization)
  Sender: FDA-Public Use
  Company Number: None

PATIENT
  Age: 16 Year
  Sex: Female
  Weight: 52 kg

DRUGS (1)
  1. ETANERCEPT [Suspect]
     Active Substance: ETANERCEPT
     Indication: Juvenile idiopathic arthritis
     Route: 065
     Dates: start: 20220929, end: 20240131

REACTIONS (9)
  - Pain in extremity [Unknown]
  - Meningococcal sepsis [Recovering/Resolving]
  - Catarrh [Unknown]
  - Pyrexia [Unknown]
  - Otitis media acute [Unknown]
  - Septic shock [Recovering/Resolving]
  - Malaise [Unknown]
  - Petechiae [Unknown]
  - Headache [Unknown]

NARRATIVE: CASE EVENT DATE: 20240101
